FAERS Safety Report 20381272 (Version 4)
Quarter: 2022Q1

REPORT INFORMATION
  Report Type: Spontaneous
  Country: GB (occurrence: GB)
  Receive Date: 20220127
  Receipt Date: 20220316
  Transmission Date: 20220423
  Serious: Yes (Hospitalization, Other)
  Sender: FDA-Public Use
  Company Number: GB-SANOFI-00942675

PATIENT
  Sex: Female

DRUGS (3)
  1. IRBESARTAN [Suspect]
     Active Substance: IRBESARTAN
     Dosage: 150 MG, QD
  2. IRBESARTAN [Suspect]
     Active Substance: IRBESARTAN
     Dosage: 75 MG
  3. MYLONE [Concomitant]

REACTIONS (14)
  - Near death experience [Unknown]
  - Arterial haemorrhage [Unknown]
  - Illness [Unknown]
  - Hypertension [Unknown]
  - Transposition of the great vessels [Unknown]
  - Cerebrovascular accident [Unknown]
  - Anxiety [Unknown]
  - Aortic disorder [Unknown]
  - Contrast media allergy [Unknown]
  - Blood pressure increased [Unknown]
  - Aneurysm [Unknown]
  - Feeling abnormal [Unknown]
  - Migraine [Unknown]
  - Insomnia [Unknown]
